FAERS Safety Report 16487817 (Version 1)
Quarter: 2019Q2

REPORT INFORMATION
  Report Type: Spontaneous
  Country: TR (occurrence: TR)
  Receive Date: 20190627
  Receipt Date: 20190627
  Transmission Date: 20190711
  Serious: Yes (Other)
  Sender: FDA-Public Use
  Company Number: TR-JNJFOC-20190617862

PATIENT
  Age: 31 Day

DRUGS (4)
  1. RISPERDAL [Suspect]
     Active Substance: RISPERIDONE
     Indication: PROPHYLAXIS
  2. HALOPERIDOL. [Suspect]
     Active Substance: HALOPERIDOL
     Indication: SCHIZOPHRENIA
     Route: 063
  3. HALOPERIDOL. [Suspect]
     Active Substance: HALOPERIDOL
     Indication: PROPHYLAXIS
     Route: 063
  4. RISPERDAL [Suspect]
     Active Substance: RISPERIDONE
     Indication: SCHIZOPHRENIA
     Route: 063

REACTIONS (4)
  - Hypokinesia [Recovered/Resolved]
  - Feeding disorder [Recovered/Resolved]
  - Exposure via breast milk [Recovered/Resolved]
  - Hypersomnia [Recovered/Resolved]
